FAERS Safety Report 21910660 (Version 1)
Quarter: 2023Q1

REPORT INFORMATION
  Report Type: Spontaneous
  Country: DE (occurrence: DE)
  Receive Date: 20230125
  Receipt Date: 20230125
  Transmission Date: 20230417
  Serious: Yes (Death, Disabling, Other)
  Sender: FDA-Public Use
  Company Number: None

PATIENT
  Sex: Female

DRUGS (1)
  1. ELIQUIS [Suspect]
     Active Substance: APIXABAN
     Indication: Product used for unknown indication

REACTIONS (4)
  - Head injury [Unknown]
  - Altered state of consciousness [Unknown]
  - Fall [Fatal]
  - Pelvic fracture [Unknown]

NARRATIVE: CASE EVENT DATE: 20200101
